FAERS Safety Report 6545713-0 (Version None)
Quarter: 2010Q1

REPORT INFORMATION
  Report Type: 
  Country: None (occurrence: None)
  Receive Date: 20100121
  Receipt Date: 20100113
  Transmission Date: 20100710
  Serious: Yes (Life-Threatening, Hospitalization)
  Sender: FDA-Public Use
  Company Number: FR-ABBOTT-10P-056-0617848-00

PATIENT
  Sex: Male

DRUGS (13)
  1. LIPANTHYL TABLETS [Suspect]
     Indication: DYSLIPIDAEMIA
     Dosage: DAILY
     Route: 048
     Dates: start: 20091101, end: 20091102
  2. TENORMIN [Suspect]
     Indication: HYPERTENSION
     Route: 048
     Dates: start: 20091102, end: 20091102
  3. COVERSYL [Suspect]
     Indication: HYPERTENSION
     Dates: start: 20091101, end: 20091101
  4. LOXEN [Suspect]
     Indication: HYPERTENSION
     Dates: start: 20091103, end: 20091103
  5. GLUCOPHAGE [Concomitant]
     Indication: TYPE 2 DIABETES MELLITUS
     Route: 048
  6. DIAMICRON [Concomitant]
     Indication: TYPE 2 DIABETES MELLITUS
     Route: 048
     Dates: end: 20091101
  7. VASTAREL [Concomitant]
     Indication: DRUG USE FOR UNKNOWN INDICATION
     Route: 048
     Dates: end: 20091101
  8. PLAVIX [Concomitant]
     Indication: DRUG USE FOR UNKNOWN INDICATION
     Route: 048
     Dates: end: 20091101
  9. ASPEGIC 1000 [Concomitant]
     Indication: DRUG USE FOR UNKNOWN INDICATION
     Route: 048
     Dates: end: 20091101
  10. LEXOMIL [Concomitant]
     Indication: DRUG USE FOR UNKNOWN INDICATION
     Route: 048
     Dates: end: 20091101
  11. LIPANOR [Concomitant]
     Indication: DYSLIPIDAEMIA
     Dosage: DAILY
     Route: 048
     Dates: end: 20091101
  12. DAFALGAN [Concomitant]
     Indication: DRUG USE FOR UNKNOWN INDICATION
     Dates: end: 20090101
  13. HEPARIN [Concomitant]
     Indication: DRUG USE FOR UNKNOWN INDICATION
     Dates: start: 20091031, end: 20091101

REACTIONS (10)
  - ANURIA [None]
  - BLOOD LACTATE DEHYDROGENASE INCREASED [None]
  - BRADYCARDIA [None]
  - CARDIAC ARREST [None]
  - RENAL FAILURE ACUTE [None]
  - SERUM FERRITIN DECREASED [None]
  - TACHYARRHYTHMIA [None]
  - THROMBOCYTOPENIA [None]
  - TRANSAMINASES INCREASED [None]
  - TROPONIN INCREASED [None]
